FAERS Safety Report 14321878 (Version 1)
Quarter: 2017Q4

REPORT INFORMATION
  Report Type: Spontaneous
  Country: US (occurrence: US)
  Receive Date: 20171225
  Receipt Date: 20171225
  Transmission Date: 20180321
  Serious: No
  Sender: FDA-Public Use
  Company Number: US-ASTRAZENECA-2017SF22078

PATIENT
  Age: 68 Year
  Sex: Female
  Weight: 83.5 kg

DRUGS (8)
  1. NEXIUM [Suspect]
     Active Substance: ESOMEPRAZOLE MAGNESIUM
     Indication: GASTROOESOPHAGEAL REFLUX DISEASE
     Route: 048
  2. LOVASTATIN. [Concomitant]
     Active Substance: LOVASTATIN
     Indication: BLOOD CHOLESTEROL
     Route: 048
  3. DOCUSATE SODIUM. [Concomitant]
     Active Substance: DOCUSATE SODIUM
     Indication: PROPHYLAXIS
     Dosage: 100.0MG UNKNOWN
     Route: 048
  4. NEXIUM [Suspect]
     Active Substance: ESOMEPRAZOLE MAGNESIUM
     Indication: GASTROOESOPHAGEAL REFLUX DISEASE
     Route: 048
  5. RANITIDINE. [Concomitant]
     Active Substance: RANITIDINE
     Indication: PROPHYLAXIS
     Route: 048
     Dates: start: 2017
  6. ASPIRIN. [Concomitant]
     Active Substance: ASPIRIN
     Indication: PROPHYLAXIS
     Route: 048
  7. ACETAMINOPHEN  EXTENDED RELEASE TABLET [Concomitant]
     Indication: ARTHRITIS
     Dosage: 650.0MG AS REQUIRED
     Route: 048
  8. ALLEGRA [Concomitant]
     Active Substance: FEXOFENADINE HYDROCHLORIDE
     Indication: HYPERSENSITIVITY
     Route: 048
     Dates: start: 2017

REACTIONS (23)
  - Body height decreased [Not Recovered/Not Resolved]
  - Feeling abnormal [Unknown]
  - Abdominal distension [Unknown]
  - Spinal deformity [Not Recovered/Not Resolved]
  - Faeces discoloured [Unknown]
  - Fatigue [Unknown]
  - Frequent bowel movements [Unknown]
  - Arthritis [Not Recovered/Not Resolved]
  - Flatulence [Unknown]
  - Renal disorder [Not Recovered/Not Resolved]
  - Back pain [Unknown]
  - Product use issue [Unknown]
  - Meniscus injury [Unknown]
  - Productive cough [Unknown]
  - Weight increased [Not Recovered/Not Resolved]
  - Bone pain [Unknown]
  - Abdominal pain upper [Unknown]
  - Constipation [Unknown]
  - Vomiting [Unknown]
  - Diarrhoea [Unknown]
  - Swelling [Unknown]
  - Off label use [Not Recovered/Not Resolved]
  - Bladder discomfort [Recovered/Resolved]

NARRATIVE: CASE EVENT DATE: 2017
